APPROVED DRUG PRODUCT: DOXEPIN HYDROCHLORIDE
Active Ingredient: DOXEPIN HYDROCHLORIDE
Strength: EQ 150MG BASE
Dosage Form/Route: CAPSULE;ORAL
Application: A213796 | Product #001
Applicant: ADAPTIS PHARMA PRIVATE LTD
Approved: Apr 19, 2022 | RLD: No | RS: No | Type: DISCN